FAERS Safety Report 4913037-0 (Version None)
Quarter: 2006Q1

REPORT INFORMATION
  Report Type: 
  Country: None (occurrence: None)
  Receive Date: 20060210
  Receipt Date: 20060201
  Transmission Date: 20060701
  Serious: Yes (Hospitalization, Other)
  Sender: FDA-Public Use
  Company Number: 2005-11-1060

PATIENT
  Age: 50 Year
  Sex: Male
  Weight: 108.8633 kg

DRUGS (21)
  1. PEG-INTRON [Suspect]
     Indication: HEPATITIS C
     Dosage: 150 MCG QWK* SUBCUTANEOU
     Route: 058
     Dates: start: 20050926, end: 20051110
  2. PEG-INTRON [Suspect]
     Indication: HEPATITIS C
     Dosage: 150 MCG QWK* SUBCUTANEOU
     Route: 058
     Dates: start: 20050926
  3. PEG-INTRON [Suspect]
     Indication: HEPATITIS C
     Dosage: 150 MCG QWK* SUBCUTANEOU
     Route: 058
     Dates: start: 20051128
  4. REBETOL [Suspect]
     Indication: HEPATITIS C
     Dosage: 1200-800*MG/D ORAL
     Route: 048
     Dates: start: 20050926, end: 20051110
  5. REBETOL [Suspect]
     Indication: HEPATITIS C
     Dosage: 1200-800*MG/D ORAL
     Route: 048
     Dates: start: 20050926
  6. REBETOL [Suspect]
     Indication: HEPATITIS C
     Dosage: 1200-800*MG/D ORAL
     Route: 048
     Dates: start: 20051128
  7. ACTOS (PIOGLITAZONE HCL) TABLETS [Concomitant]
  8. AMITRIPTYLINE HCL [Concomitant]
  9. ASPIRIN [Concomitant]
  10. ATENOLOL [Concomitant]
  11. GEMFIBROZIL [Concomitant]
  12. METFORMIN HCL [Concomitant]
  13. MILK THISTLE FRUIT CAPSULES [Concomitant]
  14. OXYCONTIN (OXYCODONE HCL) TABLETS [Concomitant]
  15. QUINAPRIL HYDROCHLORIDE TABLETS [Concomitant]
  16. IBUPROFEN [Concomitant]
  17. HYDROCHLOROTHIAZIDE [Concomitant]
  18. LACTULOSE [Concomitant]
  19. REGLAN [Concomitant]
  20. DECADRON SRC [Concomitant]
  21. METHADONE [Concomitant]

REACTIONS (38)
  - ANXIETY [None]
  - BACK PAIN [None]
  - BLOOD GLUCOSE DECREASED [None]
  - BLOOD PRESSURE INCREASED [None]
  - BODY TEMPERATURE DECREASED [None]
  - DEHYDRATION [None]
  - DEPRESSED LEVEL OF CONSCIOUSNESS [None]
  - DIARRHOEA [None]
  - DRUG DOSE OMISSION [None]
  - DRUG HYPERSENSITIVITY [None]
  - DRUG INEFFECTIVE [None]
  - DRY SKIN [None]
  - ENCEPHALITIS [None]
  - FATIGUE [None]
  - FEELING ABNORMAL [None]
  - GASTROINTESTINAL DISORDER [None]
  - HAEMATOCRIT DECREASED [None]
  - HAEMOGLOBIN DECREASED [None]
  - HEADACHE [None]
  - HEART RATE INCREASED [None]
  - HEPATIC ENCEPHALOPATHY [None]
  - HEPATOCELLULAR DAMAGE [None]
  - HYPOTENSION [None]
  - MEMORY IMPAIRMENT [None]
  - MYALGIA [None]
  - NAUSEA [None]
  - NEUTROPHIL COUNT DECREASED [None]
  - ORAL INTAKE REDUCED [None]
  - PANCREATIC DISORDER [None]
  - PHOTOPHOBIA [None]
  - RASH [None]
  - SEPSIS [None]
  - SOMNOLENCE [None]
  - THIRST [None]
  - URINE KETONE BODY PRESENT [None]
  - VOMITING [None]
  - WEIGHT DECREASED [None]
  - WHITE BLOOD CELL COUNT DECREASED [None]
